FAERS Safety Report 5964104-4 (Version None)
Quarter: 2008Q4

REPORT INFORMATION
  Report Type: 
  Country: None (occurrence: None)
  Receive Date: 20081124
  Receipt Date: 20081120
  Transmission Date: 20090506
  Serious: Yes (Other)
  Sender: FDA-Public Use
  Company Number: FR-ROXANE LABORATORIES, INC.-2008-RO-00260RO

PATIENT
  Age: 45 Year
  Sex: Male

DRUGS (4)
  1. METHOTREXATE [Suspect]
     Indication: RHEUMATOID ARTHRITIS
  2. PREDNISONE TAB [Suspect]
     Indication: RHEUMATOID ARTHRITIS
  3. ADALIMUMAB [Suspect]
     Indication: RHEUMATOID ARTHRITIS
  4. VALCICLOVIR [Concomitant]
     Indication: HERPES ZOSTER

REACTIONS (1)
  - HERPES ZOSTER [None]
